FAERS Safety Report 5872929-9 (Version None)
Quarter: 2008Q3

REPORT INFORMATION
  Report Type: 
  Country: None (occurrence: None)
  Receive Date: 20080903
  Receipt Date: 20080824
  Transmission Date: 20090109
  Serious: Yes (Other)
  Sender: FDA-Public Use
  Company Number: CHPA2008US14146

PATIENT
  Age: 26 Year
  Sex: Male

DRUGS (1)
  1. THERAFLU FLU AND CHEST CONGESTION WITHOUT PSE (NCH)(GUAIFENESIN, PARAC [Suspect]
     Indication: INFLUENZA
     Dosage: 1 DF, ONCE/SINGLE, ORAL
     Route: 048
     Dates: start: 20080823, end: 20080823

REACTIONS (1)
  - SWELLING FACE [None]
